FAERS Safety Report 21574157 (Version 13)
Quarter: 2024Q1

REPORT INFORMATION
  Report Type: Spontaneous
  Country: US (occurrence: US)
  Receive Date: 20221109
  Receipt Date: 20240325
  Transmission Date: 20240409
  Serious: No
  Sender: FDA-Public Use
  Company Number: US-PFIZER INC-PV202200099809

PATIENT
  Age: 70 Year
  Sex: Female

DRUGS (2)
  1. BRAFTOVI [Suspect]
     Active Substance: ENCORAFENIB
     Indication: Colon cancer
     Dosage: TAKE 4 CAPSULES BY MOUTH DAILY
     Route: 048
  2. BRAFTOVI [Suspect]
     Active Substance: ENCORAFENIB
     Indication: Signet-ring cell carcinoma
     Dosage: 4 DF, DAILY (TAKE 4 CAPSULES DAILY)
     Route: 048

REACTIONS (1)
  - Neoplasm progression [Unknown]
